FAERS Safety Report 17885982 (Version 1)
Quarter: 2020Q2

REPORT INFORMATION
  Report Type: Spontaneous
  Country: US (occurrence: US)
  Receive Date: 20200611
  Receipt Date: 20200611
  Transmission Date: 20200714
  Serious: No
  Sender: FDA-Public Use
  Company Number: NVSC2020US163182

PATIENT
  Sex: Female

DRUGS (1)
  1. OMNITROPE [Suspect]
     Active Substance: SOMATROPIN
     Indication: PRODUCT USED FOR UNKNOWN INDICATION
     Dosage: 2.1 MG, QD (BED TIME)
     Route: 065

REACTIONS (5)
  - Burning sensation [Unknown]
  - Hypersensitivity [Unknown]
  - Injection site erythema [Unknown]
  - Pain [Unknown]
  - Headache [Unknown]
